FAERS Safety Report 8112540-2 (Version None)
Quarter: 2012Q1

REPORT INFORMATION
  Report Type: 
  Country: None (occurrence: None)
  Receive Date: 20120203
  Receipt Date: 20120125
  Transmission Date: 20120608
  Serious: Yes (Hospitalization)
  Sender: FDA-Public Use
  Company Number: US-JNJFOC-20120111312

PATIENT
  Sex: Female

DRUGS (2)
  1. FOLIC ACID [Concomitant]
     Indication: VITAMIN SUPPLEMENTATION
     Route: 065
  2. REMICADE [Suspect]
     Indication: RHEUMATOID ARTHRITIS
     Route: 042
     Dates: start: 20040101

REACTIONS (12)
  - WEIGHT INCREASED [None]
  - HYPERTENSION [None]
  - BLINDNESS UNILATERAL [None]
  - DEPRESSION [None]
  - MACULAR DEGENERATION [None]
  - RETINAL TEAR [None]
  - CATARACT [None]
  - ASTHENIA [None]
  - HAEMORRHAGE [None]
  - PAIN IN EXTREMITY [None]
  - RASH PRURITIC [None]
  - GASTROINTESTINAL DISORDER [None]
